FAERS Safety Report 5316871-0 (Version None)
Quarter: 2007Q2

REPORT INFORMATION
  Report Type: 
  Country: None (occurrence: None)
  Receive Date: 20070504
  Receipt Date: 20070501
  Transmission Date: 20071010
  Serious: Yes (Hospitalization)
  Sender: FDA-Public Use
  Company Number: US-GLAXOSMITHKLINE-A0649482A

PATIENT
  Age: 75 Year
  Sex: Female

DRUGS (2)
  1. TYKERB [Suspect]
     Indication: BREAST CANCER
     Dosage: 1250MG PER DAY
     Route: 048
     Dates: start: 20070414, end: 20070419
  2. XELODA [Suspect]
     Dosage: 300MG TWICE PER DAY
     Route: 048
     Dates: start: 20070401, end: 20070418

REACTIONS (3)
  - FUNGAL INFECTION [None]
  - MELAENA [None]
  - VOMITING [None]
